FAERS Safety Report 23991871 (Version 1)
Quarter: 2024Q2

REPORT INFORMATION
  Report Type: Report from Study
  Country: GB (occurrence: GB)
  Receive Date: 20240619
  Receipt Date: 20240619
  Transmission Date: 20240715
  Serious: Yes (Other)
  Sender: FDA-Public Use
  Company Number: GB-ABBVIE-5783465

PATIENT
  Age: 87 Year
  Sex: Male

DRUGS (2)
  1. SKYRIZI [Suspect]
     Active Substance: RISANKIZUMAB-RZAA
     Indication: Psoriasis
     Dosage: FORM STRENGTH-150 MG
     Route: 058
     Dates: start: 20240613
  2. SKYRIZI [Suspect]
     Active Substance: RISANKIZUMAB-RZAA
     Dosage: FORM STRENGTH-150 MG
     Route: 058
     Dates: end: 2024

REACTIONS (6)
  - Pleural effusion [Unknown]
  - Asthenia [Unknown]
  - Productive cough [Unknown]
  - Parkinson^s disease [Unknown]
  - General physical health deterioration [Not Recovered/Not Resolved]
  - Dyspnoea [Unknown]

NARRATIVE: CASE EVENT DATE: 20240101
